FAERS Safety Report 4433399-0 (Version None)
Quarter: 2004Q3

REPORT INFORMATION
  Report Type: 
  Country: None (occurrence: None)
  Receive Date: 20040824
  Receipt Date: 20040812
  Transmission Date: 20050211
  Serious: Yes (Other)
  Sender: FDA-Public Use
  Company Number: K200401246

PATIENT
  Age: 60 Year
  Sex: Male
  Weight: 79.4 kg

DRUGS (7)
  1. ALTACE [Suspect]
     Indication: HYPERTENSION
     Dosage: 10 MG, QD, ORAL
     Route: 048
     Dates: start: 20021001
  2. MEBARAL (METHYLPHENOBARBITAL) [Suspect]
     Indication: CONVULSION
     Dosage: 200MG 400MG, 600MG, 400MG, ORAL
     Route: 048
     Dates: start: 19680101, end: 20021001
  3. MEBARAL (METHYLPHENOBARBITAL) [Suspect]
     Indication: CONVULSION
     Dosage: 200MG 400MG, 600MG, 400MG, ORAL
     Route: 048
     Dates: start: 20040806, end: 20040801
  4. MEBARAL (METHYLPHENOBARBITAL) [Suspect]
     Indication: CONVULSION
     Dosage: 200MG 400MG, 600MG, 400MG, ORAL
     Route: 048
     Dates: start: 20021001, end: 20040805
  5. MEBARAL (METHYLPHENOBARBITAL) [Suspect]
     Indication: CONVULSION
     Dosage: 200MG 400MG, 600MG, 400MG, ORAL
     Route: 048
     Dates: start: 20040801
  6. DILANTIN [Concomitant]
  7. LIPITOR [Concomitant]

REACTIONS (4)
  - BLOOD CHOLESTEROL INCREASED [None]
  - CONVULSION [None]
  - DRUG INTERACTION [None]
  - HEADACHE [None]
